FAERS Safety Report 6828831-9 (Version None)
Quarter: 2010Q3

REPORT INFORMATION
  Report Type: 
  Country: None (occurrence: None)
  Receive Date: 20100706
  Receipt Date: 20100621
  Transmission Date: 20110219
  Serious: Yes (Hospitalization)
  Sender: FDA-Public Use
  Company Number: 2010MA000237

PATIENT
  Age: 78 Year
  Sex: Male

DRUGS (8)
  1. CITALOPRAM HYDROBROMIDE [Suspect]
     Indication: DEPRESSION
     Dosage: QD; PO
     Route: 048
  2. SULFATRIM PEDIATRIC [Suspect]
     Dosage: PO
     Route: 048
  3. LEVOTHYROXINE SODIUM [Concomitant]
  4. COUMADIN [Concomitant]
  5. DEXAMETHASONE [Concomitant]
  6. THALIDOMIDE [Concomitant]
  7. MELPHALAN [Concomitant]
  8. PREV MEDS [Concomitant]

REACTIONS (4)
  - DRUG INTERACTION [None]
  - HAEMATOMA [None]
  - HAEMATURIA [None]
  - INTERNATIONAL NORMALISED RATIO INCREASED [None]
